FAERS Safety Report 23298817 (Version 1)
Quarter: 2023Q4

REPORT INFORMATION
  Report Type: Report from Study
  Country: CO (occurrence: CO)
  Receive Date: 20231215
  Receipt Date: 20231215
  Transmission Date: 20240110
  Serious: Yes (Other)
  Sender: FDA-Public Use
  Company Number: CO-JNJFOC-20230917597

PATIENT
  Age: 35 Year
  Sex: Male
  Weight: 97 kg

DRUGS (2)
  1. TREMFYA [Suspect]
     Active Substance: GUSELKUMAB
     Indication: Psoriatic arthropathy
     Dosage: LAST DRUG APPLICATION: 03-JUL-2023
     Route: 058
     Dates: start: 20220607
  2. TREMFYA [Suspect]
     Active Substance: GUSELKUMAB

REACTIONS (4)
  - Pneumonia [Recovering/Resolving]
  - Psoriatic arthropathy [Not Recovered/Not Resolved]
  - Bronchitis [Not Recovered/Not Resolved]
  - Psoriasis [Not Recovered/Not Resolved]

NARRATIVE: CASE EVENT DATE: 20230701
